FAERS Safety Report 18203300 (Version 2)
Quarter: 2020Q3

REPORT INFORMATION
  Report Type: Report from Study
  Country: NZ (occurrence: NZ)
  Receive Date: 20200827
  Receipt Date: 20200907
  Transmission Date: 20201104
  Serious: No
  Sender: FDA-Public Use
  Company Number: NZ-PFIZER INC-2020324946

PATIENT
  Age: 82 Year
  Sex: Male

DRUGS (1)
  1. TALAZOPARIB. [Suspect]
     Active Substance: TALAZOPARIB
     Indication: PANCREATIC CARCINOMA METASTATIC
     Dosage: UNK
     Dates: start: 20190822

REACTIONS (1)
  - No adverse event [Unknown]
